FAERS Safety Report 17526046 (Version 1)
Quarter: 2020Q1

REPORT INFORMATION
  Report Type: Spontaneous
  Country: GB (occurrence: GB)
  Receive Date: 20200311
  Receipt Date: 20200311
  Transmission Date: 20200409
  Serious: Yes (Disabling, Other)
  Sender: FDA-Public Use
  Company Number: GB-PERRIGO-20GB003555

PATIENT
  Age: 7 Year
  Sex: Male

DRUGS (1)
  1. PARACETAMOL [Suspect]
     Active Substance: ACETAMINOPHEN
     Indication: INFLUENZA
     Dosage: TOTAL OF 3 DOSES
     Route: 048
     Dates: start: 20200208, end: 20200210

REACTIONS (3)
  - Tremor [Recovered/Resolved]
  - Hallucination [Recovered/Resolved]
  - Malaise [Recovered/Resolved]

NARRATIVE: CASE EVENT DATE: 20200208
